FAERS Safety Report 8254752-3 (Version None)
Quarter: 2012Q2

REPORT INFORMATION
  Report Type: 
  Country: None (occurrence: None)
  Receive Date: 20120403
  Receipt Date: 20120320
  Transmission Date: 20120825
  Serious: Yes (Hospitalization)
  Sender: FDA-Public Use
  Company Number: PHEH2012US003442

PATIENT
  Sex: Male
  Weight: 92 kg

DRUGS (22)
  1. PREDNISONE TAB [Concomitant]
     Dosage: 10 MG, DAILY
     Route: 048
  2. IMODIUM MULTI-SYMPTOM RELIEF [Concomitant]
     Dosage: 2 MG, UNK
  3. KLOR-CON [Concomitant]
     Dosage: 10 MEQ, UNK
  4. VITAMIN B-12 [Concomitant]
     Dosage: 500 UG, UNK
  5. LOVAZA [Concomitant]
     Dosage: 1000 MG, UNK
  6. XOPENEX [Concomitant]
     Dosage: 0.63 MG, UNK
  7. VITAMIN D [Concomitant]
  8. DABIGATRAN ETEXILATE [Concomitant]
  9. GLEEVEC [Suspect]
     Indication: CHRONIC MYELOID LEUKAEMIA
     Dosage: 400 MG, DAILY
     Route: 048
  10. GLEEVEC [Suspect]
     Dosage: 100 MG, DAILY
     Dates: start: 20120214
  11. PRILOSEC [Concomitant]
     Dosage: 20 MG, DAILY
  12. FERROUS SULFATE TAB [Concomitant]
     Dosage: 325 MG, UNK
  13. LASIX [Concomitant]
     Indication: FLUID RETENTION
     Dosage: 40 MG, UNK
     Route: 048
  14. DIGOXIN [Concomitant]
     Dosage: 0.25 MG, UNK
  15. TYLENOL [Concomitant]
     Dosage: 500 MG, UNK
  16. ASPIRIN [Concomitant]
     Dosage: 81 MG, DAILY
  17. STEROIDS NOS [Concomitant]
  18. LYRICA [Concomitant]
  19. AZATHIOPRINE [Concomitant]
     Indication: SCLERODERMA
     Dosage: 50 MG, BID
     Route: 048
  20. PANTOPRAZOLE [Concomitant]
     Dosage: 20 MG, UNK
  21. LASIX [Concomitant]
     Dosage: 20 MG, DAILY PRN
  22. SYNTHROID [Concomitant]
     Dosage: 50 UG, DAILY

REACTIONS (30)
  - GASTROINTESTINAL MOTILITY DISORDER [None]
  - BLOOD PRESSURE FLUCTUATION [None]
  - HYPOMAGNESAEMIA [None]
  - EXTRASYSTOLES [None]
  - PULMONARY OEDEMA [None]
  - WEIGHT DECREASED [None]
  - DECREASED APPETITE [None]
  - HIATUS HERNIA [None]
  - DYSPNOEA [None]
  - DISCOMFORT [None]
  - COUGH [None]
  - ARTHRALGIA [None]
  - CARDIAC DISORDER [None]
  - RENAL FAILURE ACUTE [None]
  - URINE OUTPUT DECREASED [None]
  - DYSPHAGIA [None]
  - RALES [None]
  - SCLERODERMA RENAL CRISIS [None]
  - RENAL DISORDER [None]
  - CARDIAC FAILURE ACUTE [None]
  - CHEST PAIN [None]
  - SPUTUM ABNORMAL [None]
  - FEELING COLD [None]
  - REGURGITATION [None]
  - ASTHENIA [None]
  - DIARRHOEA [None]
  - HEART RATE IRREGULAR [None]
  - PLEURAL EFFUSION [None]
  - HYPOPHOSPHATAEMIA [None]
  - OEDEMA PERIPHERAL [None]
